FAERS Safety Report 10556155 (Version 6)
Quarter: 2017Q2

REPORT INFORMATION
  Report Type: Report from Study
  Country: JP (occurrence: JP)
  Receive Date: 20141031
  Receipt Date: 20170620
  Transmission Date: 20170829
  Serious: Yes (Hospitalization)
  Sender: FDA-Public Use
  Company Number: JP-ROCHE-1482050

PATIENT
  Age: 80 Year
  Sex: Male
  Weight: 58 kg

DRUGS (14)
  1. ARTIST [Concomitant]
     Active Substance: CARVEDILOL
     Dosage: EVENING
     Route: 048
  2. LEUPLIN [Concomitant]
     Active Substance: LEUPROLIDE ACETATE
     Route: 065
  3. AMLODIPINE [Concomitant]
     Active Substance: AMLODIPINE BESYLATE
     Dosage: DOSAGE UNCERTAIN.
     Route: 048
  4. RENAGEL [Concomitant]
     Active Substance: SEVELAMER HYDROCHLORIDE
     Route: 048
  5. AMLODIPINE [Concomitant]
     Active Substance: AMLODIPINE BESYLATE
     Route: 048
  6. NICORANDIL [Concomitant]
     Active Substance: NICORANDIL
     Route: 048
  7. PARIET [Concomitant]
     Active Substance: RABEPRAZOLE SODIUM
     Dosage: MORNING
     Route: 048
  8. CASODEX [Concomitant]
     Active Substance: BICALUTAMIDE
     Route: 065
  9. PREDNISOLONE. [Concomitant]
     Active Substance: PREDNISOLONE
     Dosage: MORNING
     Route: 048
  10. BAYASPIRIN [Concomitant]
     Active Substance: ASPIRIN
     Dosage: DOSAGE UNCERTAIN.
     Route: 065
  11. FESIN (JAPAN) [Concomitant]
     Active Substance: IRON SUCROSE
     Dosage: DOSAGE UNCERTAIN.
     Route: 065
  12. METHOXY POLYETHYLENE GLYCOL-EPOETIN BETA [Suspect]
     Active Substance: METHOXY POLYETHYLENE GLYCOL-EPOETIN BETA
     Indication: NEPHROGENIC ANAEMIA
     Route: 042
     Dates: start: 20140303
  13. PREDONINE [Concomitant]
     Active Substance: PREDNISOLONE
     Dosage: DOSAGE UNCERTAIN.
     Route: 065
  14. METHYCOBAL [Concomitant]
     Active Substance: METHYLCOBALAMIN
     Dosage: DOSAGE UNCERTAIN.
     Route: 065

REACTIONS (5)
  - Ureteric cancer [Recovering/Resolving]
  - Nephroureterectomy [Recovered/Resolved]
  - Bladder neoplasm [Recovering/Resolving]
  - Biopsy bladder [Recovered/Resolved]
  - Extradural neoplasm [Recovering/Resolving]

NARRATIVE: CASE EVENT DATE: 20141016
